FAERS Safety Report 6459937-4 (Version None)
Quarter: 2009Q4

REPORT INFORMATION
  Report Type: 
  Country: None (occurrence: None)
  Receive Date: 20091129
  Receipt Date: 20091116
  Transmission Date: 20100525
  Serious: Yes (Hospitalization)
  Sender: FDA-Public Use
  Company Number: PHEH2009US16134

PATIENT
  Sex: Female

DRUGS (2)
  1. RECLAST [Suspect]
     Dosage: UNK
     Dates: start: 20090101
  2. CALCIUM [Suspect]

REACTIONS (3)
  - BLOOD CALCIUM INCREASED [None]
  - DEHYDRATION [None]
  - MYALGIA [None]
